FAERS Safety Report 9671321 (Version 1)
Quarter: 2013Q4

REPORT INFORMATION
  Report Type: Spontaneous
  Country: US (occurrence: None)
  Receive Date: 20131105
  Receipt Date: 20131105
  Transmission Date: 20140711
  Serious: Yes (Life-Threatening)
  Sender: FDA-Public Use
  Company Number: None

PATIENT
  Age: 49 Year
  Sex: Female
  Weight: 172.37 kg

DRUGS (1)
  1. AVELOX [Suspect]
     Indication: BRONCHITIS
     Dosage: 1 PILL ONCE DAILY
     Route: 048
     Dates: start: 20131103, end: 20131103

REACTIONS (9)
  - Feeling hot [None]
  - Pruritus [None]
  - Dyspnoea [None]
  - Heart rate increased [None]
  - Hyperhidrosis [None]
  - Hypersensitivity [None]
  - Pneumonia [None]
  - Erythema [None]
  - Oxygen saturation decreased [None]
